FAERS Safety Report 21706307 (Version 2)
Quarter: 2022Q4

REPORT INFORMATION
  Report Type: Spontaneous
  Country: US (occurrence: US)
  Receive Date: 20221209
  Receipt Date: 20221220
  Transmission Date: 20230113
  Serious: No
  Sender: FDA-Public Use
  Company Number: US-PFIZER INC-202201356648

PATIENT
  Age: 78 Year
  Sex: Female
  Weight: 52.154 kg

DRUGS (2)
  1. IBRANCE [Suspect]
     Active Substance: PALBOCICLIB
     Indication: Bone cancer metastatic
     Dosage: 1 TABLET ONCE DAILY FOR 21 DAYS ON THEN 7 DAYS OFF
     Dates: start: 202211
  2. LETROZOLE [Concomitant]
     Active Substance: LETROZOLE
     Dosage: UNK

REACTIONS (11)
  - Malaise [Unknown]
  - Rash [Unknown]
  - Urticaria [Unknown]
  - Stomatitis [Recovering/Resolving]
  - Epistaxis [Not Recovered/Not Resolved]
  - Pyrexia [Recovered/Resolved]
  - Urinary tract infection [Unknown]
  - Cough [Unknown]
  - Tongue blistering [Unknown]
  - Oral mucosal blistering [Unknown]
  - Off label use [Unknown]

NARRATIVE: CASE EVENT DATE: 20220101
